FAERS Safety Report 13742535 (Version 1)
Quarter: 2017Q3

REPORT INFORMATION
  Report Type: Spontaneous
  Country: DE (occurrence: DE)
  Receive Date: 20170711
  Receipt Date: 20170711
  Transmission Date: 20171127
  Serious: Yes (Other)
  Sender: FDA-Public Use
  Company Number: DE-BAYER-2017-128218

PATIENT
  Age: 43 Year
  Sex: Female

DRUGS (2)
  1. MOXIFLOXACIN IV [Suspect]
     Active Substance: MOXIFLOXACIN
     Indication: SINUSITIS
     Dosage: 400 MG, UNK
     Route: 042
     Dates: start: 20170109
  2. PREDNISOLONE. [Concomitant]
     Active Substance: PREDNISOLONE
     Dosage: HIGH DOSE

REACTIONS (4)
  - Tendonitis [Recovered/Resolved]
  - Joint effusion [Recovered/Resolved]
  - Tendon rupture [Recovered/Resolved]
  - Synovitis [Recovered/Resolved]

NARRATIVE: CASE EVENT DATE: 20170127
